FAERS Safety Report 16608752 (Version 1)
Quarter: 2019Q3

REPORT INFORMATION
  Report Type: Spontaneous
  Country: US (occurrence: US)
  Receive Date: 20190719
  Receipt Date: 20190719
  Transmission Date: 20191004
  Serious: Yes (Other)
  Sender: FDA-Public Use
  Company Number: None

PATIENT
  Age: 49 Year
  Sex: Female
  Weight: 63 kg

DRUGS (2)
  1. NATURAL OPHTHAMALIC RX WOMEN^S TEAR STIMULATION [Suspect]
     Active Substance: HOMEOPATHICS
     Indication: DRY EYE
     Dosage: ?          QUANTITY:15 DROP(S);?
     Route: 047
     Dates: start: 20180731, end: 20190719
  2. DAILY VITAMINS [Concomitant]
     Active Substance: VITAMINS

REACTIONS (2)
  - Instillation site pain [None]
  - Instillation site dryness [None]
